FAERS Safety Report 6082180-8 (Version None)
Quarter: 2009Q1

REPORT INFORMATION
  Report Type: 
  Country: None (occurrence: None)
  Receive Date: 20090218
  Receipt Date: 20090212
  Transmission Date: 20090719
  Serious: Yes (Other)
  Sender: FDA-Public Use
  Company Number: A0768211A

PATIENT
  Age: 9 Year
  Sex: Female

DRUGS (3)
  1. LAMICTAL [Suspect]
     Route: 048
     Dates: start: 20081101, end: 20081101
  2. CLONIDINE HCL [Suspect]
  3. ZOLOFT [Suspect]

REACTIONS (7)
  - CONTUSION [None]
  - CRYING [None]
  - EMOTIONAL DISORDER [None]
  - HALLUCINATION [None]
  - HALLUCINATION, AUDITORY [None]
  - PARANOIA [None]
  - WEIGHT DECREASED [None]
